FAERS Safety Report 8998246 (Version 1)
Quarter: 2013Q1

REPORT INFORMATION
  Report Type: Spontaneous
  Country: HR (occurrence: HR)
  Receive Date: 20130104
  Receipt Date: 20130104
  Transmission Date: 20140127
  Serious: Yes (Other)
  Sender: FDA-Public Use
  Company Number: HR-TEVA-378068ISR

PATIENT
  Age: 33 Year
  Sex: Female
  Weight: 80 kg

DRUGS (3)
  1. SULFAMETHOXAZOLE (+) TRIMETHOPRIM [Suspect]
     Indication: BACTERIURIA
     Route: 048
     Dates: start: 20121101, end: 20121102
  2. AZITHROMYCIN [Suspect]
     Indication: BACTERIURIA
     Route: 048
     Dates: start: 20121102, end: 20121104
  3. NIBEL [Concomitant]
     Indication: HYPERTENSION
     Dosage: 2.5 MILLIGRAM DAILY;
     Route: 048

REACTIONS (6)
  - Abdominal pain [Recovered/Resolved]
  - Aspartate aminotransferase increased [Recovered/Resolved]
  - Alanine aminotransferase increased [Recovered/Resolved]
  - Amylase increased [Recovered/Resolved]
  - Amylase increased [Recovered/Resolved]
  - Drug-induced liver injury [Unknown]
